FAERS Safety Report 6535414-7 (Version None)
Quarter: 2009Q4

REPORT INFORMATION
  Report Type: 
  Country: None (occurrence: None)
  Receive Date: 20091228
  Receipt Date: 20090824
  Transmission Date: 20100525
  Serious: Yes (Other)
  Sender: FDA-Public Use
  Company Number: US-003348

PATIENT
  Age: 48 Year
  Sex: Female
  Weight: 98 kg

DRUGS (3)
  1. MULTIHANCE [Suspect]
     Indication: NUCLEAR MAGNETIC RESONANCE IMAGING
     Dosage: 20ML ONCE INTRAVENOUS
     Route: 042
     Dates: start: 20090821, end: 20090821
  2. MULTIHANCE [Suspect]
     Indication: TONGUE NEOPLASM MALIGNANT STAGE UNSPECIFIED
     Dosage: 20ML ONCE INTRAVENOUS
     Route: 042
     Dates: start: 20090821, end: 20090821
  3. MULTIHANCE [Suspect]
     Indication: TONSILLAR DISORDER
     Dosage: 20ML ONCE INTRAVENOUS
     Route: 042
     Dates: start: 20090821, end: 20090821

REACTIONS (6)
  - COUGH [None]
  - DYSPNOEA [None]
  - GENERALISED ERYTHEMA [None]
  - PRURITUS GENERALISED [None]
  - SNEEZING [None]
  - THROAT TIGHTNESS [None]
